FAERS Safety Report 9515312 (Version 1)
Quarter: 2013Q1

REPORT INFORMATION
  Report Type: Spontaneous
  Country: US (occurrence: None)
  Receive Date: 20130305
  Receipt Date: 20130305
  Transmission Date: 20140127
  Serious: Yes (Hospitalization, Other)
  Sender: FDA-Public Use
  Company Number: 163-21880-12042932

PATIENT
  Age: 63 Year
  Sex: Male

DRUGS (14)
  1. REVLIMID (LENALIDOMIDE) (25 MILLIGRAM, CAPSULES)? [Suspect]
     Indication: PLASMA CELL MYELOMA
     Dosage: 25 MG, 1 IN 1 D, PO
     Route: 048
     Dates: start: 200911, end: 2010
  2. ATIVAN (LORAZEPAM) (UNKNOWN) [Concomitant]
  3. COREG (CARVEDILOL) (UNKNOWN) [Concomitant]
  4. VITAMIN D (ERGOCALCIFEROL) (UNKNOWN) [Concomitant]
  5. DICLOFEN POTASSIUM (DICLOFENAC POTASSIUM) (TABLETS) [Concomitant]
  6. FENTANYL (FENTANYL) (POULTICE OR PATCH) [Concomitant]
  7. METRONIDAZOLE (METRONIDAZOLE) (TABLETS) (METRONIDAZOLE) [Concomitant]
  8. TRIAMCINOLONE (TRIAMCINOLONE) (CREAM) [Concomitant]
  9. ZOMETA (ZOLEDRONIC ACID) (INJECTION) [Concomitant]
  10. MAGNESIUM OXIDE (MAGNESIUM OXIDE) (TABLETS) [Concomitant]
  11. DEXILANT (DEXLANSOPRAZOLE) (CAPSULES) [Concomitant]
  12. IMODIUM (LOPERAMIDE HYDROCHLORIDE) (CAPSULES) [Concomitant]
  13. ACYCLOVIR (ACICLOVIR) (CAPSULES) [Concomitant]
  14. BACTRIM (BACTRIM) (TABLETS) [Concomitant]

REACTIONS (3)
  - Rib fracture [None]
  - Pneumonia [None]
  - White blood cell count decreased [None]
